FAERS Safety Report 8282646-6 (Version None)
Quarter: 2012Q2

REPORT INFORMATION
  Report Type: 
  Country: None (occurrence: None)
  Receive Date: 20120413
  Receipt Date: 20120412
  Transmission Date: 20120825
  Serious: Yes (Other)
  Sender: FDA-Public Use
  Company Number: US-PFIZER INC-2012091778

PATIENT
  Sex: Female
  Weight: 109 kg

DRUGS (4)
  1. LYRICA [Suspect]
     Indication: PAIN
     Dosage: 75 MG, 2X/DAY
     Route: 048
     Dates: start: 20120201, end: 20120301
  2. MOBIC [Concomitant]
     Indication: ARTHRITIS
     Dosage: 15 MG
  3. NOVOLIN N [Concomitant]
     Indication: DIABETES MELLITUS
     Dosage: UNK
  4. LESCOL [Concomitant]
     Indication: BLOOD CHOLESTEROL INCREASED
     Dosage: UNK

REACTIONS (2)
  - PAIN [None]
  - GAIT DISTURBANCE [None]
